FAERS Safety Report 22945822 (Version 2)
Quarter: 2024Q1

REPORT INFORMATION
  Report Type: Spontaneous
  Country: US (occurrence: US)
  Receive Date: 20230914
  Receipt Date: 20240102
  Transmission Date: 20240410
  Serious: No
  Sender: FDA-Public Use
  Company Number: US-BRISTOL-MYERS SQUIBB COMPANY-2023-130377

PATIENT
  Age: 72 Year
  Sex: Male
  Weight: 59.42 kg

DRUGS (1)
  1. REVLIMID [Suspect]
     Active Substance: LENALIDOMIDE
     Indication: Non-Hodgkin^s lymphoma
     Dosage: ONGOING
     Route: 048
     Dates: start: 20230501

REACTIONS (3)
  - Tremor [Unknown]
  - Hypoaesthesia [Unknown]
  - Muscle spasms [Unknown]
